FAERS Safety Report 23467776 (Version 1)
Quarter: 2024Q1

REPORT INFORMATION
  Report Type: Spontaneous
  Country: ES (occurrence: ES)
  Receive Date: 20240201
  Receipt Date: 20240201
  Transmission Date: 20240410
  Serious: Yes (Hospitalization)
  Sender: FDA-Public Use
  Company Number: ES-JNJFOC-20240154538

PATIENT
  Age: 60 Year
  Sex: Female
  Weight: 59 kg

DRUGS (15)
  1. BORTEZOMIB [Suspect]
     Active Substance: BORTEZOMIB
     Indication: Amyloidosis
     Dosage: FORM OF ADMIN-INJECTION
     Route: 058
     Dates: start: 20231222, end: 20231229
  2. CYCLOPHOSPHAMIDE [Suspect]
     Active Substance: CYCLOPHOSPHAMIDE
     Indication: Amyloidosis
     Dosage: FOA-UNK
     Route: 048
     Dates: start: 20231222, end: 20231222
  3. DARATUMUMAB [Suspect]
     Active Substance: DARATUMUMAB
     Indication: Amyloidosis
     Dosage: FOA-SOLUTION FOR INJECTION
     Route: 058
     Dates: start: 20231222, end: 20231229
  4. DEXAMETHASONE [Suspect]
     Active Substance: DEXAMETHASONE
     Indication: Amyloidosis
     Dosage: FOA-UNK
     Route: 048
     Dates: start: 20231222, end: 20231222
  5. ACYCLOVIR [Concomitant]
     Active Substance: ACYCLOVIR
     Indication: Antiviral prophylaxis
     Dosage: FOA-TABLET UNCOATED
     Route: 048
     Dates: start: 20231221
  6. CALCIUM CARBONATE\CHOLECALCIFEROL [Concomitant]
     Active Substance: CALCIUM CARBONATE\CHOLECALCIFEROL
     Indication: Hypocalcaemia
     Dosage: 500/400?FOA-TABLET UNCOATED
     Route: 048
     Dates: start: 20231229
  7. FOLIC ACID [Concomitant]
     Active Substance: FOLIC ACID
     Indication: Vitamin supplementation
     Dosage: FOA-TABLET UNCOATED
     Route: 048
     Dates: start: 20231128
  8. PRIMPERAN [Concomitant]
     Active Substance: METOCLOPRAMIDE HYDROCHLORIDE
     Indication: Vomiting
     Dosage: FOA-TABLET UNCOATED
     Route: 048
     Dates: start: 20231229
  9. ATORVASTATIN [Concomitant]
     Active Substance: ATORVASTATIN
     Indication: Type I hyperlipidaemia
     Dosage: FOA-TABLET UNCOATED
     Route: 048
     Dates: start: 20231128
  10. SULFAMETHOXAZOLE\TRIMETHOPRIM [Concomitant]
     Active Substance: SULFAMETHOXAZOLE\TRIMETHOPRIM
     Indication: Antibiotic prophylaxis
     Dosage: FOA-TABLET UNCOATED
     Route: 048
     Dates: start: 20231221
  11. DIAZEPAM [Concomitant]
     Active Substance: DIAZEPAM
     Indication: Depression
     Dosage: FOA-TABLET UNCOATED
     Route: 048
     Dates: start: 20231128
  12. FUROSEMIDE [Concomitant]
     Active Substance: FUROSEMIDE
     Indication: Nephrotic syndrome
     Dosage: FOA-TABLET UNCOATED
     Route: 048
     Dates: start: 20231128
  13. CITALOPRAM [Concomitant]
     Active Substance: CITALOPRAM HYDROBROMIDE
     Indication: Depression
     Dosage: FOA-TABLET UNCOATED
     Route: 048
     Dates: start: 20231128
  14. ENOXAPARIN SODIUM [Concomitant]
     Active Substance: ENOXAPARIN SODIUM
     Indication: Polycythaemia vera
     Dosage: FOA-INJECTION
     Route: 058
     Dates: start: 20231128
  15. ENOXAPARIN SODIUM [Concomitant]
     Active Substance: ENOXAPARIN SODIUM
     Indication: Type I hyperlipidaemia

REACTIONS (2)
  - Peripheral ischaemia [Recovered/Resolved]
  - Off label use [Unknown]

NARRATIVE: CASE EVENT DATE: 20231222
